FAERS Safety Report 23814536 (Version 1)
Quarter: 2024Q2

REPORT INFORMATION
  Report Type: Spontaneous
  Country: FR (occurrence: FR)
  Receive Date: 20240503
  Receipt Date: 20240503
  Transmission Date: 20240715
  Serious: Yes (Life-Threatening)
  Sender: FDA-Public Use
  Company Number: None

PATIENT
  Age: 38 Year
  Sex: Male
  Weight: 80 kg

DRUGS (9)
  1. PHLOROGLUCINOL\1,3,5-TRIMETHOXYBENZENE [Suspect]
     Active Substance: PHLOROGLUCINOL\1,3,5-TRIMETHOXYBENZENE
     Indication: Poisoning deliberate
     Dosage: NOT SPECIFIED
     Route: 048
     Dates: start: 20240313, end: 20240313
  2. TRIMEPRAZINE [Suspect]
     Active Substance: TRIMEPRAZINE
     Indication: Poisoning deliberate
     Dosage: NOT SPECIFIED
     Route: 048
     Dates: start: 20240313, end: 20240313
  3. VALPROMIDE [Suspect]
     Active Substance: VALPROMIDE
     Indication: Poisoning deliberate
     Dosage: NOT SPECIFIED, GASTRO-RESISTANT FILM-COATED TABLET
     Route: 048
     Dates: start: 20240313, end: 20240313
  4. LORMETAZEPAM [Suspect]
     Active Substance: LORMETAZEPAM
     Indication: Poisoning deliberate
     Dosage: NOT SPECIFIED
     Route: 048
     Dates: start: 20240313, end: 20240313
  5. TRAMADOL HYDROCHLORIDE [Suspect]
     Active Substance: TRAMADOL HYDROCHLORIDE
     Indication: Poisoning deliberate
     Dosage: NOT SPECIFIED
     Route: 048
     Dates: start: 20240313, end: 20240313
  6. DIAZEPAM [Suspect]
     Active Substance: DIAZEPAM
     Indication: Poisoning deliberate
     Dosage: NOT SPECIFIED
     Route: 048
     Dates: start: 20240313, end: 20240313
  7. AMITRIPTYLINE HYDROCHLORIDE [Suspect]
     Active Substance: AMITRIPTYLINE HYDROCHLORIDE
     Indication: Poisoning deliberate
     Dosage: NOT SPECIFIED
     Route: 048
     Dates: start: 20240313, end: 20240313
  8. ANETHOLTRITHION [Suspect]
     Active Substance: ANETHOLTRITHION
     Indication: Poisoning deliberate
     Dosage: NOT SPECIFIED
     Route: 048
     Dates: start: 20240313, end: 20240313
  9. MILNACIPRAN [Suspect]
     Active Substance: MILNACIPRAN
     Indication: Poisoning deliberate
     Dosage: NOT SPECIFIED
     Route: 048
     Dates: start: 20240313, end: 20240313

REACTIONS (4)
  - Oxygen saturation decreased [Recovered/Resolved]
  - Altered state of consciousness [Recovered/Resolved]
  - Blood creatine phosphokinase increased [Recovered/Resolved]
  - Mydriasis [Recovered/Resolved]

NARRATIVE: CASE EVENT DATE: 20240313
